FAERS Safety Report 17391711 (Version 2)
Quarter: 2020Q1

REPORT INFORMATION
  Report Type: Spontaneous
  Country: RU (occurrence: RU)
  Receive Date: 20200207
  Receipt Date: 20200213
  Transmission Date: 20200409
  Serious: Yes (Death, Life-Threatening, Hospitalization)
  Sender: FDA-Public Use
  Company Number: NVSC2020RU032627

PATIENT
  Age: 64 Year
  Sex: Female
  Weight: 95 kg

DRUGS (7)
  1. GLICLAZIDE [Concomitant]
     Active Substance: GLICLAZIDE
     Indication: DIABETES MELLITUS
     Dosage: 60 MG
     Route: 048
     Dates: start: 20191014, end: 20191114
  2. KETONAL DUO [Suspect]
     Active Substance: KETOPROFEN
     Indication: OSTEOARTHRITIS
     Dosage: 150 MG, QD
     Route: 048
     Dates: start: 20191102, end: 20191114
  3. PREDNISOLONE. [Suspect]
     Active Substance: PREDNISOLONE
     Indication: OSTEOARTHRITIS
     Dosage: 30 MG, QD
     Route: 048
     Dates: start: 20191014, end: 20201114
  4. L-THYROXIN BERLIN-CHEMIE [Concomitant]
     Indication: HYPOTHYROIDISM
     Dosage: 100 MG DAILY
     Route: 048
     Dates: start: 20191014, end: 20191114
  5. METHOTREXAT-EBEWE [Suspect]
     Active Substance: METHOTREXATE SODIUM
     Indication: OSTEOARTHRITIS
     Dosage: 5 MG, BID
     Route: 048
     Dates: start: 20191102, end: 20191110
  6. FERRUM LEK [Concomitant]
     Indication: ANAEMIA
     Dosage: 200 MG DAILY
     Route: 048
     Dates: start: 20191014, end: 20191114
  7. OMEZ [Concomitant]
     Active Substance: OMEPRAZOLE
     Indication: GASTRIC ULCER
     Dosage: 40 MG DAILY
     Route: 048
     Dates: start: 20191014, end: 20191114

REACTIONS (2)
  - Candida infection [Fatal]
  - Agranulocytosis [Fatal]

NARRATIVE: CASE EVENT DATE: 20191114
